FAERS Safety Report 15352301 (Version 2)
Quarter: 2019Q1

REPORT INFORMATION
  Report Type: Report from Study
  Country: FR (occurrence: FR)
  Receive Date: 20180905
  Receipt Date: 20190103
  Transmission Date: 20190417
  Serious: Yes (Hospitalization, Other)
  Sender: FDA-Public Use
  Company Number: FR-TAKEDA-2018MPI011057

PATIENT
  Age: 64 Year
  Sex: Male

DRUGS (7)
  1. IXAZOMIB [Suspect]
     Active Substance: IXAZOMIB
     Indication: PLASMA CELL MYELOMA
     Dosage: 3 MG, UNK
     Route: 065
     Dates: start: 20170802
  2. LENALIDOMIDE [Suspect]
     Active Substance: LENALIDOMIDE
     Indication: PLASMA CELL MYELOMA
     Dosage: 25 MG, QD
     Route: 065
     Dates: start: 20170802, end: 20180816
  3. IXAZOMIB [Suspect]
     Active Substance: IXAZOMIB
     Dosage: 4 MG, 1/WEEK
     Route: 065
     Dates: end: 20180816
  4. ESOMEPRAZOLE. [Concomitant]
     Active Substance: ESOMEPRAZOLE MAGNESIUM
     Dosage: 20 MG, QD
     Route: 065
  5. ELIQUIS [Concomitant]
     Active Substance: APIXABAN
     Dosage: 2.5 MG, BID
     Route: 065
  6. LOPERAMIDE [Concomitant]
     Active Substance: LOPERAMIDE
     Dosage: UNK
     Route: 065
  7. VALACYCLOVIR [Concomitant]
     Active Substance: VALACYCLOVIR HYDROCHLORIDE
     Dosage: 500 MG, BID
     Route: 065

REACTIONS (1)
  - Sepsis syndrome [Recovered/Resolved]

NARRATIVE: CASE EVENT DATE: 20180816
